FAERS Safety Report 25435008 (Version 1)
Quarter: 2025Q2

REPORT INFORMATION
  Report Type: Spontaneous
  Country: BR (occurrence: BR)
  Receive Date: 20250613
  Receipt Date: 20250613
  Transmission Date: 20250717
  Serious: Yes (Death)
  Sender: JOHNSON AND JOHNSON
  Company Number: BR-JNJFOC-20250615602

PATIENT
  Sex: Male

DRUGS (1)
  1. HALDOL [Suspect]
     Active Substance: HALOPERIDOL
     Indication: Agitation
     Route: 065
     Dates: start: 20250323, end: 20250323

REACTIONS (1)
  - Death [Fatal]
